FAERS Safety Report 22635266 (Version 1)
Quarter: 2023Q2

REPORT INFORMATION
  Report Type: Spontaneous
  Country: US (occurrence: US)
  Receive Date: 20230623
  Receipt Date: 20230623
  Transmission Date: 20230721
  Serious: Yes (Hospitalization)
  Sender: FDA-Public Use
  Company Number: US-PFIZER INC-202300227696

PATIENT
  Age: 66 Year
  Sex: Male

DRUGS (1)
  1. VYNDAMAX [Suspect]
     Active Substance: TAFAMIDIS
     Indication: Cardiac disorder
     Dosage: 1 TABLET EVERY NIGHT

REACTIONS (2)
  - Pneumonia [Recovered/Resolved with Sequelae]
  - Asthenia [Unknown]

NARRATIVE: CASE EVENT DATE: 20230612
